FAERS Safety Report 4721450-X (Version None)
Quarter: 2005Q3

REPORT INFORMATION
  Report Type: 
  Country: None (occurrence: None)
  Receive Date: 20050721
  Receipt Date: 20040913
  Transmission Date: 20060218
  Serious: No
  Sender: FDA-Public Use
  Company Number: US-BRISTOL-MYERS SQUIBB COMPANY-12700258

PATIENT
  Age: 76 Year
  Sex: Male

DRUGS (12)
  1. COUMADIN [Suspect]
     Indication: PERIPHERAL VASCULAR DISORDER
     Dosage: 6 MG ON SUNDAYS, MONDAYS, TUESDAYS, WEDNESDAYS, AND THURSDAYS AND 8 MG ON FRIDAYS AND SATURDAYS.
     Route: 048
  2. NITROGLYCERIN [Concomitant]
  3. LIPITOR [Concomitant]
  4. PREVACID [Concomitant]
  5. RISPERDAL [Concomitant]
  6. TYLENOL W/ CODEINE NO. 3 [Concomitant]
  7. REGLAN [Concomitant]
  8. FUROSEMIDE [Concomitant]
  9. ATENOLOL [Concomitant]
  10. CELEXA [Concomitant]
  11. PREDNISONE [Concomitant]
  12. GLYBURIDE [Concomitant]

REACTIONS (1)
  - INTERNATIONAL NORMALISED RATIO DECREASED [None]
